FAERS Safety Report 15933056 (Version 1)
Quarter: 2019Q1

REPORT INFORMATION
  Report Type: Spontaneous
  Country: US (occurrence: US)
  Receive Date: 20190118
  Receipt Date: 20190118
  Transmission Date: 20190417
  Serious: No
  Sender: FDA-Public Use
  Company Number: None

PATIENT
  Age: 56 Year
  Sex: Male

DRUGS (2)
  1. NORDITROPIN [Suspect]
     Active Substance: SOMATROPIN
     Indication: CARDIOMYOPATHY
  2. NORDITROPIN [Suspect]
     Active Substance: SOMATROPIN
     Indication: HIV INFECTION

REACTIONS (1)
  - Product use issue [None]

NARRATIVE: CASE EVENT DATE: 20190116
